FAERS Safety Report 25910365 (Version 2)
Quarter: 2025Q4

REPORT INFORMATION
  Report Type: Spontaneous
  Country: US (occurrence: US)
  Receive Date: 20251012
  Receipt Date: 20251109
  Transmission Date: 20260117
  Serious: No
  Sender: JOHNSON AND JOHNSON
  Company Number: US-JNJFOC-20251007070

PATIENT
  Sex: Male

DRUGS (1)
  1. TREMFYA [Suspect]
     Active Substance: GUSELKUMAB
     Indication: Product used for unknown indication
     Route: 065

REACTIONS (6)
  - Accidental exposure to product [Unknown]
  - Device delivery system issue [Unknown]
  - Device deployment issue [Unknown]
  - Product dose omission issue [Unknown]
  - Exposure via skin contact [Unknown]
  - Product leakage [Unknown]

NARRATIVE: CASE EVENT DATE: 20250624
